FAERS Safety Report 13875217 (Version 4)
Quarter: 2018Q2

REPORT INFORMATION
  Report Type: Report from Study
  Country: None (occurrence: US)
  Receive Date: 20170816
  Receipt Date: 20180626
  Transmission Date: 20180711
  Serious: Yes (Other)
  Sender: FDA-Public Use
  Company Number: US-ABBVIE-17K-163-1881710-00

PATIENT
  Age: 53 Year
  Sex: Male

DRUGS (2)
  1. HUMIRA [Suspect]
     Active Substance: ADALIMUMAB
     Indication: RHEUMATOID ARTHRITIS
     Route: 058
     Dates: end: 2016
  2. HUMIRA [Suspect]
     Active Substance: ADALIMUMAB
     Route: 058
     Dates: start: 20170210

REACTIONS (9)
  - Injection site irritation [Unknown]
  - Rheumatoid arthritis [Recovered/Resolved]
  - Ostectomy [Unknown]
  - Arthralgia [Recovered/Resolved]
  - Injection site pruritus [Unknown]
  - Osteoarthritis [Recovering/Resolving]
  - Tenoplasty [Unknown]
  - Injection site pain [Not Recovered/Not Resolved]
  - Injection site erythema [Unknown]

NARRATIVE: CASE EVENT DATE: 2016
